FAERS Safety Report 16677768 (Version 1)
Quarter: 2019Q3

REPORT INFORMATION
  Report Type: Spontaneous
  Country: US (occurrence: US)
  Receive Date: 20190807
  Receipt Date: 20190807
  Transmission Date: 20191004
  Serious: No
  Sender: FDA-Public Use
  Company Number: US-NEOPHARMA INC-000168

PATIENT

DRUGS (2)
  1. AUGMENTIN [Suspect]
     Active Substance: AMOXICILLIN\CLAVULANATE POTASSIUM
     Indication: PRODUCT USED FOR UNKNOWN INDICATION
  2. LYRICA [Suspect]
     Active Substance: PREGABALIN
     Indication: HEREDITARY MOTOR AND SENSORY NEUROPATHY
     Dosage: 1 CAP (S) QID 90 DAYS
     Route: 048

REACTIONS (3)
  - Diarrhoea [Unknown]
  - Drug hypersensitivity [Unknown]
  - Vomiting [Unknown]
